FAERS Safety Report 6986788-4 (Version None)
Quarter: 2010Q3

REPORT INFORMATION
  Report Type: 
  Country: None (occurrence: None)
  Receive Date: 20100915
  Receipt Date: 20090810
  Transmission Date: 20110219
  Serious: No
  Sender: FDA-Public Use
  Company Number: US-WYE-H10538809

PATIENT
  Sex: Female
  Weight: 79.45 kg

DRUGS (1)
  1. PRISTIQ [Suspect]
     Indication: DEPRESSION
     Route: 048
     Dates: start: 20090809, end: 20090809

REACTIONS (7)
  - ANXIETY [None]
  - DRUG WITHDRAWAL SYNDROME [None]
  - HEADACHE [None]
  - NAUSEA [None]
  - NERVOUSNESS [None]
  - VISION BLURRED [None]
  - VISUAL FIELD DEFECT [None]
